FAERS Safety Report 22850325 (Version 2)
Quarter: 2023Q4

REPORT INFORMATION
  Report Type: Spontaneous
  Country: US (occurrence: US)
  Receive Date: 20230822
  Receipt Date: 20231120
  Transmission Date: 20240109
  Serious: Yes (Other)
  Sender: FDA-Public Use
  Company Number: US-PFIZER INC-PV202300142845

PATIENT
  Age: 80 Year
  Sex: Female
  Weight: 82.55 kg

DRUGS (7)
  1. METHOTREXATE SODIUM [Suspect]
     Active Substance: METHOTREXATE SODIUM
     Indication: Rheumatoid arthritis
     Dosage: 20MG, SQ ONCE WEEK
     Route: 058
     Dates: start: 2000
  2. METHOTREXATE SODIUM [Suspect]
     Active Substance: METHOTREXATE SODIUM
     Dosage: 20MG, SQ ONCE WEEK (PRESENTLY IN THURSDAY)
     Route: 058
  3. ENBREL [Concomitant]
     Active Substance: ETANERCEPT
     Indication: Rheumatoid arthritis
     Dosage: UNK
     Route: 058
  4. ADALIMUMAB [Concomitant]
     Active Substance: ADALIMUMAB\ISOPROPYL ALCOHOL
     Indication: Rheumatoid arthritis
     Dosage: UNK
     Route: 058
  5. ORENCIA [Concomitant]
     Active Substance: ABATACEPT
     Indication: Rheumatoid arthritis
     Dosage: UNK, MONTHLY
     Route: 042
  6. KEVZARA [Concomitant]
     Active Substance: SARILUMAB
     Indication: Rheumatoid arthritis
     Dosage: 200 MG (EVERY 2 WEEKS)
     Route: 058
     Dates: start: 2019, end: 2022
  7. XELJANZ XR [Concomitant]
     Active Substance: TOFACITINIB CITRATE
     Indication: Rheumatoid arthritis
     Dosage: UNK, 1X/DAY
     Route: 048
     Dates: start: 202307

REACTIONS (6)
  - Shoulder arthroplasty [Unknown]
  - Knee arthroplasty [Recovered/Resolved]
  - Osteoarthritis [Unknown]
  - Spinal fusion surgery [Unknown]
  - Drug ineffective [Unknown]
  - Body height decreased [Unknown]

NARRATIVE: CASE EVENT DATE: 20000101
